FAERS Safety Report 15494454 (Version 1)
Quarter: 2018Q4

REPORT INFORMATION
  Report Type: Spontaneous
  Country: US (occurrence: US)
  Receive Date: 20181012
  Receipt Date: 20181012
  Transmission Date: 20190205
  Serious: Yes (Other)
  Sender: FDA-Public Use
  Company Number: None

PATIENT
  Age: 64 Year
  Sex: Female
  Weight: 65.34 kg

DRUGS (8)
  1. CHLOROPHYLL [Concomitant]
  2. COENZYME Q10 [Concomitant]
     Active Substance: UBIDECARENONE
  3. BORAGE [Concomitant]
  4. IODIDES TINCTURE [Concomitant]
     Active Substance: ALCOHOL
  5. VITAMIN D [Concomitant]
     Active Substance: CHOLECALCIFEROL
  6. DRONABINOL. [Concomitant]
     Active Substance: DRONABINOL
  7. CAPECITABINE. [Suspect]
     Active Substance: CAPECITABINE
     Indication: BREAST CANCER
     Route: 048
     Dates: start: 20180712
  8. MAGNESIUM CHLORIDE. [Concomitant]
     Active Substance: MAGNESIUM CHLORIDE

REACTIONS (2)
  - Gait disturbance [None]
  - Skin discolouration [None]

NARRATIVE: CASE EVENT DATE: 20181012
